FAERS Safety Report 20794772 (Version 1)
Quarter: 2022Q2

REPORT INFORMATION
  Report Type: Spontaneous
  Country: US (occurrence: None)
  Receive Date: 20220505
  Receipt Date: 20220505
  Transmission Date: 20220721
  Serious: No
  Sender: FDA-Public Use
  Company Number: None

PATIENT
  Age: 73 Year

DRUGS (4)
  1. EVEROLIMUS [Suspect]
     Active Substance: EVEROLIMUS
     Indication: Neuroendocrine carcinoma
     Dosage: FREQUENCY : DAILY;?
     Route: 048
     Dates: start: 202204
  2. DEXAMETHASONE [Concomitant]
     Active Substance: DEXAMETHASONE
  3. OXYCODONE [Concomitant]
     Active Substance: OXYCODONE
  4. TYLENOL [Concomitant]

REACTIONS (1)
  - Hospice care [None]
